FAERS Safety Report 14109413 (Version 3)
Quarter: 2017Q4

REPORT INFORMATION
  Report Type: Report from Study
  Country: None (occurrence: TR)
  Receive Date: 20171019
  Receipt Date: 20171023
  Transmission Date: 20180321
  Serious: Yes (Hospitalization)
  Sender: FDA-Public Use
  Company Number: TR-ABBVIE-17K-161-2133621-00

PATIENT
  Age: 54 Year
  Sex: Male
  Weight: 88 kg

DRUGS (4)
  1. DUODOPA [Suspect]
     Active Substance: CARBIDOPA\LEVODOPA
     Dosage: MORNING DOSE : 6.0 ML CONTINOUS DOSE: 3.0 ML EXTRA DOSE: 3.0 ML
     Route: 050
     Dates: start: 20171014, end: 201710
  2. PEXOLA [Concomitant]
     Active Substance: PRAMIPEXOLE DIHYDROCHLORIDE
     Indication: PARKINSON^S DISEASE
     Route: 048
  3. DUODOPA [Suspect]
     Active Substance: CARBIDOPA\LEVODOPA
     Indication: PARKINSON^S DISEASE
     Dosage: MORNING DOSE : 8.0 ML CONTINOUS DOSE: 8.0 ML EXTRA DOSE: 3.0 ML
     Route: 050
     Dates: start: 20171010, end: 20171014
  4. DUODOPA [Suspect]
     Active Substance: CARBIDOPA\LEVODOPA
     Dosage: MORNING : 7.0 ML?CONTINOUS: 4.4 ML?EXTRA : 1.0 ML
     Route: 050
     Dates: start: 201710

REACTIONS (2)
  - Dystonia [Recovered/Resolved]
  - Dyskinesia [Recovered/Resolved]

NARRATIVE: CASE EVENT DATE: 20171014
